FAERS Safety Report 5089436-6 (Version None)
Quarter: 2006Q3

REPORT INFORMATION
  Report Type: 
  Country: None (occurrence: None)
  Receive Date: 20060822
  Receipt Date: 20060804
  Transmission Date: 20061208
  Serious: Yes (Hospitalization, Other)
  Sender: FDA-Public Use
  Company Number: ENTC2006-0222

PATIENT
  Age: 90 Year
  Sex: Male

DRUGS (5)
  1. STALEVO 100 [Suspect]
     Indication: PARKINSON'S DISEASE
     Dosage: 100/25/200MG BID ORAL
     Route: 048
     Dates: end: 20050101
  2. NIAR [Concomitant]
  3. ENALAPRIL [Concomitant]
  4. CAPTOPRIL [Concomitant]
  5. CILOSTAZOL [Concomitant]

REACTIONS (8)
  - AGITATION [None]
  - ANAEMIA [None]
  - ANOREXIA [None]
  - ASTHENIA [None]
  - HEREDITARY DISORDER [None]
  - INSOMNIA [None]
  - LARYNGOSPASM [None]
  - PNEUMONIA ASPIRATION [None]
